FAERS Safety Report 8081851-1 (Version None)
Quarter: 2012Q1

REPORT INFORMATION
  Report Type: 
  Country: None (occurrence: None)
  Receive Date: 20120130
  Receipt Date: 20120124
  Transmission Date: 20120608
  Serious: Yes (Other)
  Sender: FDA-Public Use
  Company Number: US-PFIZER INC-2012019971

PATIENT
  Sex: Male
  Weight: 122.45 kg

DRUGS (1)
  1. BENEFIX [Suspect]
     Indication: HAEMOPHILIA
     Dosage: UNK, 3X/WEEK
     Route: 058

REACTIONS (1)
  - HEPATIC FAILURE [None]
